FAERS Safety Report 9370830 (Version 1)
Quarter: 2013Q2

REPORT INFORMATION
  Report Type: Spontaneous
  Country: FR (occurrence: FR)
  Receive Date: 20130626
  Receipt Date: 20130626
  Transmission Date: 20140414
  Serious: Yes (Hospitalization, Other)
  Sender: FDA-Public Use
  Company Number: FR-BAXTER-2013BAX023034

PATIENT
  Age: 55 Year
  Sex: Male

DRUGS (9)
  1. UROMITEXAN 1 G/10 ML, SOLUTION INJECTABLE POUR PERFUSION EN FLACON [Suspect]
     Indication: PRODUCT USED FOR UNKNOWN INDICATION
     Dosage: 1500 MG/M2
     Route: 042
     Dates: start: 20100823, end: 20130129
  2. UROMITEXAN 1 G/10 ML, SOLUTION INJECTABLE POUR PERFUSION EN FLACON [Suspect]
     Route: 042
     Dates: start: 20130312, end: 20130312
  3. IFOSFAMIDE 40 MG/ML SOLUTION FOR INFUSION [Suspect]
     Indication: PRODUCT USED FOR UNKNOWN INDICATION
     Dosage: 1500 MG/M2
     Route: 065
     Dates: start: 20100823, end: 20130129
  4. IFOSFAMIDE 40 MG/ML SOLUTION FOR INFUSION [Suspect]
     Route: 065
     Dates: start: 20130312, end: 20130312
  5. ETOPOPHOS [Suspect]
     Indication: PRODUCT USED FOR UNKNOWN INDICATION
     Dosage: 300 MG/M2
     Route: 042
     Dates: start: 20100823, end: 20130129
  6. ETOPOPHOS [Suspect]
     Route: 042
     Dates: start: 20130312, end: 20130312
  7. AUGMENTIN [Concomitant]
     Indication: PYREXIA
     Route: 065
     Dates: start: 20121218
  8. TAZOCILLINE [Concomitant]
     Indication: ANTIBIOTIC PROPHYLAXIS
     Route: 065
     Dates: end: 20130202
  9. OFLOXACINE [Concomitant]
     Indication: ANTIBIOTIC PROPHYLAXIS
     Route: 065
     Dates: start: 20130202

REACTIONS (7)
  - Anaphylactic reaction [Recovered/Resolved]
  - Pyrexia [Unknown]
  - Loss of consciousness [Unknown]
  - Hypoventilation [Unknown]
  - Hypotonic-hyporesponsive episode [Unknown]
  - Urinary incontinence [Unknown]
  - Faecal incontinence [Unknown]
